FAERS Safety Report 8998491 (Version 1)
Quarter: 2013Q1

REPORT INFORMATION
  Report Type: Spontaneous
  Country: IL (occurrence: IL)
  Receive Date: 20130103
  Receipt Date: 20130103
  Transmission Date: 20140127
  Serious: Yes (Death)
  Sender: FDA-Public Use
  Company Number: IL-ACTELION-A-CH2012-77061

PATIENT
  Age: 65 Year
  Sex: Female

DRUGS (2)
  1. TRACLEER [Suspect]
     Indication: ARTHRITIS
     Dosage: UNK MG, UNK
     Route: 048
  2. ENBREL [Concomitant]
     Dosage: 50 MG, UNK

REACTIONS (2)
  - Head injury [Fatal]
  - Fall [Fatal]
